FAERS Safety Report 25023495 (Version 5)
Quarter: 2025Q2

REPORT INFORMATION
  Report Type: Spontaneous
  Country: US (occurrence: US)
  Receive Date: 20250228
  Receipt Date: 20250513
  Transmission Date: 20250717
  Serious: Yes (Hospitalization)
  Sender: JOHNSON AND JOHNSON
  Company Number: US-JNJFOC-20250246514

PATIENT
  Age: 71 Year
  Sex: Female

DRUGS (1)
  1. CARVYKTI [Suspect]
     Active Substance: CILTACABTAGENE AUTOLEUCEL
     Indication: Plasma cell myeloma
     Route: 065

REACTIONS (3)
  - Colitis [Not Recovered/Not Resolved]
  - Oesophagitis [Recovered/Resolved]
  - Blood immunoglobulin M decreased [Unknown]
